FAERS Safety Report 7407068-9 (Version None)
Quarter: 2011Q2

REPORT INFORMATION
  Report Type: 
  Country: None (occurrence: None)
  Receive Date: 20110411
  Receipt Date: 20110331
  Transmission Date: 20111010
  Serious: Yes (Other)
  Sender: FDA-Public Use
  Company Number: DE-ELI_LILLY_AND_COMPANY-DE201103008765

PATIENT
  Sex: Female

DRUGS (2)
  1. CORTISONE [Concomitant]
     Dosage: 10 MG, UNK
  2. FORTEO [Suspect]
     Indication: OSTEOPOROSIS
     Dosage: UNK UNK, QD
     Route: 058
     Dates: start: 20110125

REACTIONS (2)
  - LUNG DISORDER [None]
  - DYSPNOEA [None]
